FAERS Safety Report 19038061 (Version 1)
Quarter: 2021Q1

REPORT INFORMATION
  Report Type: Spontaneous
  Country: ES (occurrence: ES)
  Receive Date: 20210322
  Receipt Date: 20210322
  Transmission Date: 20210420
  Serious: Yes (Hospitalization, Other)
  Sender: FDA-Public Use
  Company Number: ES-AMGEN-ESPSP2021041744

PATIENT

DRUGS (7)
  1. EVOLOCUMAB [Suspect]
     Active Substance: EVOLOCUMAB
     Indication: TYPE IIA HYPERLIPIDAEMIA
  2. ATORVASTATIN [Concomitant]
     Active Substance: ATORVASTATIN
     Dosage: 40 MILLIGRAM, QD
  3. ATORVASTATIN [Concomitant]
     Active Substance: ATORVASTATIN
     Dosage: 80 MILLIGRAM, QD
  4. EVOLOCUMAB [Suspect]
     Active Substance: EVOLOCUMAB
     Indication: TYPE IIA HYPERLIPIDAEMIA
     Dosage: 140 MILLIGRAM, Q2WK
     Route: 065
  5. ROSUVASTATIN. [Concomitant]
     Active Substance: ROSUVASTATIN
     Dosage: 20 MILLIGRAM, QD
  6. ROSUVASTATIN. [Concomitant]
     Active Substance: ROSUVASTATIN
     Dosage: 40 MILLIGRAM, QD
  7. EZETIMIBE. [Concomitant]
     Active Substance: EZETIMIBE
     Indication: HYPOLIPIDAEMIA
     Dosage: UNK

REACTIONS (27)
  - Angina unstable [Unknown]
  - Adverse reaction [Unknown]
  - Hyperhidrosis [Unknown]
  - Injection site pruritus [Unknown]
  - Injection site erythema [Unknown]
  - Pericarditis [Unknown]
  - Coronary revascularisation [Unknown]
  - Cerebrovascular accident [Unknown]
  - Weight fluctuation [Unknown]
  - Hot flush [Unknown]
  - Herpes zoster [Unknown]
  - Myalgia [Unknown]
  - Injection site swelling [Unknown]
  - Anxiety [Unknown]
  - Amnesia [Unknown]
  - Drug intolerance [Unknown]
  - Headache [Unknown]
  - Injection site pain [Unknown]
  - Acute myocardial infarction [Unknown]
  - Blood creatine phosphokinase increased [Unknown]
  - Nasopharyngitis [Unknown]
  - Influenza [Unknown]
  - Arthralgia [Unknown]
  - Memory impairment [Unknown]
  - Confusional state [Unknown]
  - Eye disorder [Unknown]
  - Gastrointestinal disorder [Unknown]
